FAERS Safety Report 4463678-2 (Version None)
Quarter: 2004Q3

REPORT INFORMATION
  Report Type: 
  Country: None (occurrence: None)
  Receive Date: 20040929
  Receipt Date: 20040920
  Transmission Date: 20050211
  Serious: Yes (Hospitalization)
  Sender: FDA-Public Use
  Company Number: 2002091216DE

PATIENT
  Age: 62 Year
  Sex: Male

DRUGS (10)
  1. CABERGOLINE [Suspect]
     Indication: RESTLESS LEGS SYNDROME
     Dosage: 0.5 MG, QD, ORAL
     Route: 048
     Dates: start: 20011004, end: 20020130
  2. CAPTOPRIL [Concomitant]
  3. MOLSIDOMINE-SLOW RELEASE [Concomitant]
  4. DILTIAZEM HYDROCHLORIDE [Concomitant]
  5. ALLOPURINOL [Concomitant]
  6. ACETYLSALICYLIC ACID [Concomitant]
  7. ATORVASTATIN (ATORVASTATIN) [Concomitant]
  8. NEBIVOLOL HYDROCHLORIDE (NEBIVOLOL HYDROCHLORIDE) [Concomitant]
  9. MUCOSOLVAN [Concomitant]
  10. PARACODIN (DIHYDROCODEINE BITARTRATE) [Concomitant]

REACTIONS (2)
  - ANGINA PECTORIS [None]
  - ANXIETY [None]
